FAERS Safety Report 9584854 (Version 2)
Quarter: 2013Q4

REPORT INFORMATION
  Report Type: Spontaneous
  Country: US (occurrence: US)
  Receive Date: 20131002
  Receipt Date: 20131112
  Transmission Date: 20140711
  Serious: Yes (Other)
  Sender: FDA-Public Use
  Company Number: US-AMGEN-USASP2013055464

PATIENT
  Age: 80 Year
  Sex: Male

DRUGS (2)
  1. ENBREL [Suspect]
     Indication: RHEUMATOID ARTHRITIS
     Dosage: 50 MG, WEEKLY
     Route: 065
     Dates: start: 20121101, end: 201310
  2. ORENCIA [Concomitant]
     Dosage: UNK
     Dates: start: 201310

REACTIONS (2)
  - Neoplasm [Recovered/Resolved]
  - Pain in extremity [Recovered/Resolved]
